FAERS Safety Report 5665165-2 (Version None)
Quarter: 2008Q1

REPORT INFORMATION
  Report Type: 
  Country: None (occurrence: None)
  Receive Date: 20080314
  Receipt Date: 20080304
  Transmission Date: 20080703
  Serious: Yes (Other)
  Sender: FDA-Public Use
  Company Number: GT-GENENTECH-257440

PATIENT
  Age: 29 Year
  Sex: Female

DRUGS (1)
  1. AVASTIN [Suspect]
     Indication: MACULAR DEGENERATION
     Dosage: 1.25 MG, UNK
     Route: 031
     Dates: start: 20070601, end: 20080221

REACTIONS (5)
  - BLINDNESS [None]
  - EYE INFLAMMATION [None]
  - HYPOPYON [None]
  - UVEITIS [None]
  - VITRITIS [None]
